FAERS Safety Report 7734501-5 (Version None)
Quarter: 2011Q3

REPORT INFORMATION
  Report Type: 
  Country: None (occurrence: None)
  Receive Date: 20110907
  Receipt Date: 20110826
  Transmission Date: 20111222
  Serious: Yes (Death, Hospitalization)
  Sender: FDA-Public Use
  Company Number: US-GLAXOSMITHKLINE-A0897689A

PATIENT
  Age: 67 Year
  Sex: Female

DRUGS (3)
  1. INSULIN [Concomitant]
  2. NIFEDIPINE [Concomitant]
  3. AVANDIA [Suspect]
     Indication: TYPE 2 DIABETES MELLITUS
     Dosage: 3MG PER DAY
     Route: 048
     Dates: start: 20060321, end: 20080323

REACTIONS (1)
  - MYOCARDIAL INFARCTION [None]
